FAERS Safety Report 18491219 (Version 1)
Quarter: 2020Q4

REPORT INFORMATION
  Report Type: Spontaneous
  Country: DE (occurrence: DE)
  Receive Date: 20201111
  Receipt Date: 20201111
  Transmission Date: 20210114
  Serious: Yes (Hospitalization, Other)
  Sender: FDA-Public Use
  Company Number: DE-BAXTER-2020BAX022377

PATIENT
  Age: 82 Year
  Sex: Male
  Weight: 74 kg

DRUGS (9)
  1. RITUXIMAB. [Suspect]
     Active Substance: RITUXIMAB
     Indication: NON-HODGKIN^S LYMPHOMA
     Dosage: 731.25 MILLIGRAM, CYCLICAL (DAY 1 OF 22 DAYS)
     Route: 065
     Dates: start: 20200310, end: 20200519
  2. NEULASTA [Suspect]
     Active Substance: PEGFILGRASTIM
     Indication: PROPHYLAXIS
     Dosage: 6 MILLIGRAM, AFTER CHEMO; EXPDT=31-MAY-2022/UNIT=PREFILLED SYRINGE
     Route: 058
     Dates: start: 20200521, end: 20200521
  3. NEULASTA [Suspect]
     Active Substance: PEGFILGRASTIM
     Indication: NEUTROPENIA
     Dosage: 6 MILLIGRAM, AFTER CHEMO; EXPDT=31-MAY-2022/UNIT=PREFILLED SYRINGE
     Route: 058
  4. ENDOXAN 1G [Suspect]
     Active Substance: CYCLOPHOSPHAMIDE
     Indication: NON-HODGKIN^S LYMPHOMA
     Dosage: 1023.75 MILLIGRAM, CYCLICAL
     Route: 065
     Dates: start: 20200520
  5. RITUXIMAB. [Suspect]
     Active Substance: RITUXIMAB
     Dosage: 731.25 MILLIGRAM, CYCLICAL
     Route: 065
     Dates: start: 20200519, end: 20200519
  6. VINCRISTINE [Concomitant]
     Active Substance: VINCRISTINE
     Indication: NON-HODGKIN^S LYMPHOMA
     Dosage: 1 MILLIGRAM, CYCLICAL (DAY 2)
     Route: 065
     Dates: start: 20200520, end: 20200520
  7. DOXIL [Suspect]
     Active Substance: DOXORUBICIN HYDROCHLORIDE
     Indication: NON-HODGKIN^S LYMPHOMA
     Dosage: 68.25 MILLIGRAM, CYCLICAL (DAY 2)
     Route: 065
     Dates: start: 20200310, end: 20200519
  8. DOXIL [Suspect]
     Active Substance: DOXORUBICIN HYDROCHLORIDE
     Indication: NON-HODGKIN^S LYMPHOMA
     Dosage: 68.25 MILLIGRAM, CYCLICAL
     Route: 065
     Dates: start: 20200520, end: 20200520
  9. ENDOXAN 1G [Suspect]
     Active Substance: CYCLOPHOSPHAMIDE
     Indication: NON-HODGKIN^S LYMPHOMA
     Dosage: 1023.75 MILLIGRAM, CYCLICAL (DAY 2)
     Route: 065
     Dates: start: 20200310, end: 20200519

REACTIONS (4)
  - Pyrexia [Recovered/Resolved]
  - Leukopenia [Recovered/Resolved]
  - Therapeutic product effect decreased [Unknown]
  - General physical health deterioration [Recovered/Resolved]

NARRATIVE: CASE EVENT DATE: 20200525
